FAERS Safety Report 9258390 (Version 1)
Quarter: 2013Q2

REPORT INFORMATION
  Report Type: Spontaneous
  Country: US (occurrence: US)
  Receive Date: 20130426
  Receipt Date: 20130426
  Transmission Date: 20140414
  Serious: Yes (Other)
  Sender: FDA-Public Use
  Company Number: US-NOVEN-13US006625

PATIENT
  Age: 47 Year
  Sex: Male

DRUGS (4)
  1. PAROXETINE [Suspect]
     Indication: PRODUCT USED FOR UNKNOWN INDICATION
     Dosage: UNK
     Route: 048
  2. PENTAZOCINE [Suspect]
     Indication: PRODUCT USED FOR UNKNOWN INDICATION
  3. ONDANSETRON [Suspect]
     Indication: PRODUCT USED FOR UNKNOWN INDICATION
  4. DOXYCYCLINE [Suspect]
     Indication: PRODUCT USED FOR UNKNOWN INDICATION

REACTIONS (17)
  - Hypernatraemia [Unknown]
  - Joint swelling [Unknown]
  - Serotonin syndrome [Unknown]
  - Pyrexia [Unknown]
  - Hyperkalaemia [Unknown]
  - Leukocytosis [Unknown]
  - Erythema [Unknown]
  - Clonus [Unknown]
  - Muscle rigidity [Unknown]
  - Hallucination [Unknown]
  - Vomiting [Unknown]
  - Hyperhidrosis [Unknown]
  - Mydriasis [Unknown]
  - Confusional state [Unknown]
  - Agitation [Unknown]
  - Heart rate increased [Unknown]
  - Blood pressure abnormal [Unknown]
